FAERS Safety Report 5438903-1 (Version None)
Quarter: 2007Q3

REPORT INFORMATION
  Report Type: 
  Country: None (occurrence: None)
  Receive Date: 20070831
  Receipt Date: 20070823
  Transmission Date: 20080115
  Serious: No
  Sender: FDA-Public Use
  Company Number: A0674274A

PATIENT

DRUGS (2)
  1. ALLI [Suspect]
  2. SLIMQUICK [Concomitant]

REACTIONS (1)
  - INFECTION [None]
